FAERS Safety Report 6535313-0 (Version None)
Quarter: 2010Q1

REPORT INFORMATION
  Report Type: 
  Country: None (occurrence: None)
  Receive Date: 20100113
  Receipt Date: 20100107
  Transmission Date: 20100710
  Serious: Yes (Death, Hospitalization)
  Sender: FDA-Public Use
  Company Number: US-ROCHE-678405

PATIENT
  Sex: Male

DRUGS (2)
  1. XELODA [Suspect]
     Indication: COLON CANCER
     Dosage: LOW DOSE.
     Route: 048
     Dates: start: 20091104, end: 20091117
  2. OXALIPLATIN [Suspect]
     Indication: COLON CANCER
     Dosage: FREQUENCY: ONCE
     Route: 042
     Dates: start: 20091104

REACTIONS (13)
  - ASTHENIA [None]
  - BODY TEMPERATURE INCREASED [None]
  - DEATH [None]
  - DIARRHOEA [None]
  - EATING DISORDER [None]
  - FLATULENCE [None]
  - HEPATIC FAILURE [None]
  - LARGE INTESTINAL ULCER [None]
  - MOUTH ULCERATION [None]
  - RENAL FAILURE [None]
  - SEPSIS [None]
  - SKIN EXFOLIATION [None]
  - VOMITING [None]
